FAERS Safety Report 9440480 (Version 2)
Quarter: 2013Q3

REPORT INFORMATION
  Report Type: Spontaneous
  Country: US (occurrence: US)
  Receive Date: 20130801
  Receipt Date: 20130806
  Transmission Date: 20140515
  Serious: Yes (Death)
  Sender: FDA-Public Use
  Company Number: 20130355

PATIENT
  Age: 83 Year
  Sex: Female
  Weight: 50.2 kg

DRUGS (1)
  1. VENOFER [Suspect]
     Indication: PRODUCT USED FOR UNKNOWN INDICATION
     Dates: start: 20110615

REACTIONS (4)
  - Cardiovascular disorder [None]
  - Mydriasis [None]
  - Unresponsive to stimuli [None]
  - Haemodialysis complication [None]
